FAERS Safety Report 9132303 (Version 1)
Quarter: 2013Q1

REPORT INFORMATION
  Report Type: Spontaneous
  Country: None (occurrence: US)
  Receive Date: 20130120
  Receipt Date: 20130120
  Transmission Date: 20140127
  Serious: No
  Sender: FDA-Public Use
  Company Number: US-ALLERGAN-1213640US

PATIENT
  Sex: Male

DRUGS (3)
  1. BOTOX COSMETIC [Suspect]
     Indication: SKIN WRINKLING
     Dosage: 58 UNITS, SINGLE
     Route: 030
  2. BOTOX COSMETIC [Suspect]
     Dosage: 58 UNITS, SINGLE
     Route: 030
  3. BOTOX COSMETIC [Suspect]
     Dosage: 58 UNITS, SINGLE
     Route: 030

REACTIONS (3)
  - Skin tightness [Unknown]
  - Dysphagia [Unknown]
  - Injection site pain [Unknown]
